FAERS Safety Report 7635212-7 (Version None)
Quarter: 2011Q3

REPORT INFORMATION
  Report Type: 
  Country: None (occurrence: None)
  Receive Date: 20110718
  Receipt Date: 20110707
  Transmission Date: 20111222
  Serious: Yes (Hospitalization)
  Sender: FDA-Public Use
  Company Number: JPI-P-015774

PATIENT
  Age: 46 Year
  Sex: Female
  Weight: 80.2867 kg

DRUGS (8)
  1. ESOMEPRAZOLE MAGNESIUM [Concomitant]
  2. QUETIAPINE [Concomitant]
  3. XYREM [Suspect]
     Indication: INSOMNIA
     Dosage: (   , 2 IN 1 D), ORAL   9 GM (4.5 GM, 2 IN 1 D), ORAL
     Route: 048
     Dates: start: 20050301
  4. BOTOX [Concomitant]
  5. TOPIRAMATE [Concomitant]
  6. BUTALBITAL ACETAMINOPHEN AND CAFFEINE [Concomitant]
  7. DULOXETINE HYDROCHLORIDE [Concomitant]
  8. VALPROIC ACID [Concomitant]

REACTIONS (2)
  - MIGRAINE [None]
  - CONVULSION [None]
